FAERS Safety Report 5671036-8 (Version None)
Quarter: 2008Q1

REPORT INFORMATION
  Report Type: 
  Country: None (occurrence: None)
  Receive Date: 20080318
  Receipt Date: 20080313
  Transmission Date: 20080703
  Serious: Yes (Hospitalization)
  Sender: FDA-Public Use
  Company Number: SE-ASTRAZENECA-2008SE01383

PATIENT
  Age: 31776 Day
  Sex: Male

DRUGS (9)
  1. METOPROLOL TARTRATE [Suspect]
     Route: 048
  2. GLYTRIN [Concomitant]
  3. SIMVASTATIN [Concomitant]
  4. ACETAMINOPHEN [Concomitant]
  5. FURIX [Concomitant]
  6. ASPIRIN [Concomitant]
  7. ALLOPURINOL [Concomitant]
  8. ACETYLCYSTEINE [Concomitant]
  9. ISOSORBIDE MONONITRATE [Concomitant]

REACTIONS (1)
  - SEIZURE ANOXIC [None]
